FAERS Safety Report 12660690 (Version 2)
Quarter: 2016Q3

REPORT INFORMATION
  Report Type: Spontaneous
  Country: US (occurrence: US)
  Receive Date: 20160817
  Receipt Date: 20160901
  Transmission Date: 20161109
  Serious: No
  Sender: FDA-Public Use
  Company Number: US-RELYPSA-RLY2016001098

PATIENT
  Sex: Male

DRUGS (10)
  1. CLONIDINE HCL [Concomitant]
     Active Substance: CLONIDINE HYDROCHLORIDE
  2. FOSRENOL [Concomitant]
     Active Substance: LANTHANUM CARBONATE
  3. MINOXIDIL. [Concomitant]
     Active Substance: MINOXIDIL
  4. PRAVASTATIN SODIUM. [Concomitant]
     Active Substance: PRAVASTATIN SODIUM
  5. TUMS                               /00193601/ [Concomitant]
     Active Substance: CALCIUM CARBONATE\MAGNESIUM CARBONATE\MAGNESIUM TRISILICATE
  6. PHOSLO [Concomitant]
     Active Substance: CALCIUM ACETATE
  7. DIPHENHYDRAMINE HCL [Concomitant]
     Active Substance: DIPHENHYDRAMINE HYDROCHLORIDE
  8. RENVELA [Concomitant]
     Active Substance: SEVELAMER CARBONATE
  9. VELTASSA [Suspect]
     Active Substance: PATIROMER
     Indication: HYPERKALAEMIA
     Dosage: 8.4 G, QD
     Route: 048
     Dates: start: 20160423
  10. METOPROLOL TARTRATE. [Concomitant]
     Active Substance: METOPROLOL TARTRATE

REACTIONS (2)
  - Drug administration error [Unknown]
  - No adverse event [Unknown]

NARRATIVE: CASE EVENT DATE: 2016
